FAERS Safety Report 13143529 (Version 2)
Quarter: 2019Q4

REPORT INFORMATION
  Report Type: Spontaneous
  Country: FR (occurrence: FR)
  Receive Date: 20170124
  Receipt Date: 20191230
  Transmission Date: 20200122
  Serious: Yes (Hospitalization)
  Sender: FDA-Public Use
  Company Number: FR-JNJFOC-20170118389

PATIENT
  Age: 89 Year
  Sex: Female
  Weight: 39.8 kg

DRUGS (6)
  1. ACTISKENAN [Suspect]
     Active Substance: MORPHINE SULFATE
     Indication: PAIN
     Dosage: 1 TO 6 TIMES
     Route: 048
     Dates: start: 2014, end: 2016
  2. DUROGESIC [Suspect]
     Active Substance: FENTANYL
     Route: 062
     Dates: start: 2014
  3. DUROGESIC [Suspect]
     Active Substance: FENTANYL
     Route: 062
     Dates: start: 2011
  4. DUROGESIC [Suspect]
     Active Substance: FENTANYL
     Indication: PAIN
     Route: 062
     Dates: start: 1996
  5. DUROGESIC [Suspect]
     Active Substance: FENTANYL
     Route: 062
     Dates: start: 20160521
  6. DUROGESIC [Suspect]
     Active Substance: FENTANYL
     Route: 062

REACTIONS (7)
  - Fracture [Recovering/Resolving]
  - Drug dependence [Recovering/Resolving]
  - Respiratory failure [Recovering/Resolving]
  - Hyperaesthesia [Recovering/Resolving]
  - Myoclonus [Unknown]
  - Constipation [Unknown]
  - Fall [Recovering/Resolving]
